FAERS Safety Report 16896554 (Version 1)
Quarter: 2019Q4

REPORT INFORMATION
  Report Type: Spontaneous
  Country: US (occurrence: US)
  Receive Date: 20191008
  Receipt Date: 20191008
  Transmission Date: 20200122
  Serious: No
  Sender: FDA-Public Use
  Company Number: US-TARO-2018TAR00676

PATIENT
  Sex: Female

DRUGS (1)
  1. LORATADINE ORAL SOLUTION USP 5MG/5ML [Suspect]
     Active Substance: LORATADINE
     Dosage: 10 MG, TWICE
     Dates: start: 20180913, end: 20180914

REACTIONS (2)
  - Accidental overdose [Recovered/Resolved]
  - Head discomfort [Not Recovered/Not Resolved]

NARRATIVE: CASE EVENT DATE: 20180914
